FAERS Safety Report 23047741 (Version 1)
Quarter: 2023Q4

REPORT INFORMATION
  Report Type: Report from Study
  Country: US (occurrence: US)
  Receive Date: 20231010
  Receipt Date: 20231010
  Transmission Date: 20240110
  Serious: Yes (Other)
  Sender: FDA-Public Use
  Company Number: US-SEATTLE GENETICS-2023SGN10918

PATIENT
  Sex: Female

DRUGS (1)
  1. TUCATINIB [Suspect]
     Active Substance: TUCATINIB
     Indication: Product used for unknown indication
     Dosage: 150 MG
     Route: 065

REACTIONS (3)
  - Cholestasis [Unknown]
  - Pruritus [Unknown]
  - Blood cholesterol abnormal [Unknown]
